FAERS Safety Report 22283313 (Version 2)
Quarter: 2023Q2

REPORT INFORMATION
  Report Type: Report from Study
  Country: US (occurrence: US)
  Receive Date: 20230504
  Receipt Date: 20230605
  Transmission Date: 20230722
  Serious: Yes (Other)
  Sender: FDA-Public Use
  Company Number: US-UCBSA-2022068269

PATIENT
  Age: 51 Year
  Sex: Female
  Weight: 69.7 kg

DRUGS (3)
  1. LACOSAMIDE [Suspect]
     Active Substance: LACOSAMIDE
     Indication: Seizure
     Dosage: 50 MILLIGRAM, 2X/DAY (BID) (TAKE 3 TABLETS)
     Route: 048
     Dates: start: 20230130
  2. LACOSAMIDE [Suspect]
     Active Substance: LACOSAMIDE
     Dosage: 7 PM DOSE INCREASED TO 100 MILLIGRAM
     Route: 048
  3. BRIVIACT [Suspect]
     Active Substance: BRIVARACETAM
     Indication: Seizure
     Dosage: 500 MILLIGRAM, 2X/DAY (BID)
     Route: 048
     Dates: start: 20210712

REACTIONS (3)
  - Seizure [Recovered/Resolved]
  - Dizziness [Unknown]
  - Somnolence [Unknown]

NARRATIVE: CASE EVENT DATE: 20230407
